FAERS Safety Report 6959108-9 (Version None)
Quarter: 2010Q3

REPORT INFORMATION
  Report Type: 
  Country: None (occurrence: None)
  Receive Date: 20100831
  Receipt Date: 20100818
  Transmission Date: 20110219
  Serious: Yes (Other)
  Sender: FDA-Public Use
  Company Number: ES-ELI_LILLY_AND_COMPANY-ES201008005690

PATIENT
  Sex: Male

DRUGS (8)
  1. FORTEO [Suspect]
     Indication: OSTEOPOROSIS
     Dosage: 20 UG, DAILY (1/D)
     Route: 058
     Dates: start: 20100326
  2. MYOLASTAN [Concomitant]
     Indication: MUSCLE RELAXANT THERAPY
     Dosage: 1C, DAILY (1/D)
     Route: 048
  3. OMEPRAZOLE [Concomitant]
     Indication: PROPHYLAXIS AGAINST GASTROINTESTINAL ULCER
     Dosage: 1C, DAILY (1/D)
     Route: 048
  4. TRANGOREX [Concomitant]
     Indication: ARRHYTHMIA
     Dosage: 200 UNK, DAILY (1/D)
     Route: 048
  5. IDEOS [Concomitant]
     Indication: OSTEOPOROSIS
     Dosage: 1C, DAILY (1/D)
     Route: 048
  6. MOTILIUM [Concomitant]
     Indication: DYSPEPSIA
     Dosage: 1 MG, 2/D
     Route: 048
  7. ATROVENT [Concomitant]
     Dosage: 1IN, EVERY 8 HRS
     Route: 055
  8. DIGOXIN [Concomitant]
     Dosage: 1/2C, DAILY (1/D)
     Route: 048

REACTIONS (2)
  - DECREASED APPETITE [None]
  - WEIGHT DECREASED [None]
